FAERS Safety Report 8507547-7 (Version None)
Quarter: 2012Q3

REPORT INFORMATION
  Report Type: 
  Country: None (occurrence: None)
  Receive Date: 20120713
  Receipt Date: 20120705
  Transmission Date: 20120928
  Serious: Yes (Hospitalization, Other)
  Sender: FDA-Public Use
  Company Number: US-BIOGENIDEC-2011BI011795

PATIENT
  Age: 30 Year
  Sex: Male

DRUGS (10)
  1. CIPROFLOXACIN [Concomitant]
  2. HYDROCORTISONE [Concomitant]
  3. ANTIBIOTICS [Concomitant]
  4. LOPERAMIDE HCL [Concomitant]
  5. ENTOCORT EC [Concomitant]
     Indication: CROHN'S DISEASE
     Route: 048
  6. TYSABRI [Suspect]
     Indication: CROHN'S DISEASE
     Route: 042
     Dates: start: 20080515, end: 20110309
  7. MESALAMINE [Concomitant]
     Indication: CROHN'S DISEASE
  8. COLESTIPOL HYDROCHLORIDE [Concomitant]
     Route: 048
  9. XIFAXAN [Concomitant]
     Indication: CROHN'S DISEASE
     Route: 048
  10. PENTASA [Concomitant]
     Route: 048

REACTIONS (3)
  - PROGRESSIVE MULTIFOCAL LEUKOENCEPHALOPATHY [None]
  - IMMUNE RECONSTITUTION SYNDROME [None]
  - GASTROINTESTINAL DISORDER [None]
